FAERS Safety Report 8619130-3 (Version None)
Quarter: 2012Q3

REPORT INFORMATION
  Report Type: 
  Country: None (occurrence: None)
  Receive Date: 20120824
  Receipt Date: 20120822
  Transmission Date: 20120928
  Serious: Yes (Other)
  Sender: FDA-Public Use
  Company Number: PHHY2012DE062414

PATIENT
  Sex: Female
  Weight: 68 kg

DRUGS (6)
  1. ZOLEDRONOC ACID [Suspect]
     Dosage: 5 MG, ONCE YEARLY
     Route: 042
     Dates: start: 20120710
  2. VITAMIN D [Concomitant]
  3. LOSFERRON [Concomitant]
     Indication: IRON DEFICIENCY ANAEMIA
     Dosage: 695 MG / DAY
     Route: 048
     Dates: start: 20000101
  4. CALCIUM CARBONATE [Concomitant]
     Indication: OSTEOPOROSIS
     Dosage: 500 MG / DAY
     Route: 048
     Dates: start: 20000101
  5. ZOLEDRONOC ACID [Suspect]
     Indication: OSTEOPOROSIS
     Dosage: UNK
     Route: 042
  6. ZOLEDRONOC ACID [Suspect]
     Route: 042

REACTIONS (5)
  - HYPOAESTHESIA [None]
  - DIZZINESS [None]
  - CARDIAC DISORDER [None]
  - PARAESTHESIA [None]
  - HEADACHE [None]
